FAERS Safety Report 4288139-5 (Version None)
Quarter: 2004Q1

REPORT INFORMATION
  Report Type: 
  Country: None (occurrence: None)
  Receive Date: 20040209
  Receipt Date: 20030822
  Transmission Date: 20041129
  Serious: No
  Sender: FDA-Public Use
  Company Number: US-GLAXOSMITHKLINE-A0423132A

PATIENT
  Age: 22 Year
  Sex: Female

DRUGS (2)
  1. PAXIL [Suspect]
     Dosage: 20MG PER DAY
     Route: 048
  2. ORAL CONTRACEPTIVE [Concomitant]

REACTIONS (4)
  - DISCOMFORT [None]
  - DRUG WITHDRAWAL SYNDROME [None]
  - FEELING JITTERY [None]
  - PARAESTHESIA [None]
